FAERS Safety Report 17964463 (Version 1)
Quarter: 2020Q2

REPORT INFORMATION
  Report Type: Spontaneous
  Country: DE (occurrence: DE)
  Receive Date: 20200630
  Receipt Date: 20200630
  Transmission Date: 20200714
  Serious: Yes (Life-Threatening, Hospitalization, Other)
  Sender: FDA-Public Use
  Company Number: DE-B.I. PHARMACEUTICALS,INC./RIDGEFIELD-2020-12-032590

PATIENT
  Age: 60 Year
  Sex: Male
  Weight: 94 kg

DRUGS (2)
  1. BISOPROLOL [Concomitant]
     Active Substance: BISOPROLOL
     Indication: HYPERTENSION
     Route: 065
  2. JARDIANCE [Suspect]
     Active Substance: EMPAGLIFLOZIN
     Indication: TYPE 2 DIABETES MELLITUS
     Dosage: 10MG/-25MG
     Route: 048
     Dates: start: 2017, end: 2020

REACTIONS (2)
  - Ketoacidosis [Recovered/Resolved]
  - Kussmaul respiration [Recovered/Resolved]

NARRATIVE: CASE EVENT DATE: 20200621
